FAERS Safety Report 23484577 (Version 1)
Quarter: 2024Q1

REPORT INFORMATION
  Report Type: Spontaneous
  Country: US (occurrence: None)
  Receive Date: 20240206
  Receipt Date: 20240206
  Transmission Date: 20240410
  Serious: No
  Sender: FDA-Public Use
  Company Number: 2024A029593

PATIENT

DRUGS (1)
  1. ESOMEPRAZOLE [Suspect]
     Active Substance: ESOMEPRAZOLE
     Indication: Product used for unknown indication
     Dosage: UNK

REACTIONS (5)
  - Diarrhoea [Unknown]
  - Gastrooesophageal reflux disease [Unknown]
  - Disease recurrence [Unknown]
  - Intentional product misuse [Unknown]
  - Product use complaint [Unknown]
